FAERS Safety Report 9016778 (Version 2)
Quarter: 2013Q1

REPORT INFORMATION
  Report Type: Spontaneous
  Country: US (occurrence: US)
  Receive Date: 20130116
  Receipt Date: 20130201
  Transmission Date: 20140127
  Serious: Yes (Other)
  Sender: FDA-Public Use
  Company Number: US-009507513-1301USA004366

PATIENT
  Age: 50 Year
  Sex: Male

DRUGS (2)
  1. PEGINTRON [Suspect]
     Dosage: 96 MICROGRAM, QW
     Route: 058
     Dates: start: 20120503
  2. RIBAVIRIN [Suspect]

REACTIONS (2)
  - Anger [Not Recovered/Not Resolved]
  - Depression [Not Recovered/Not Resolved]
